FAERS Safety Report 6566712-9 (Version None)
Quarter: 2010Q1

REPORT INFORMATION
  Report Type: 
  Country: None (occurrence: None)
  Receive Date: 20100202
  Receipt Date: 20100120
  Transmission Date: 20100710
  Serious: Yes (Other)
  Sender: FDA-Public Use
  Company Number: FR-JNJFOC-20100109777

PATIENT
  Age: 28 Year
  Sex: Female

DRUGS (2)
  1. INFLIXIMAB [Suspect]
     Indication: CROHN'S DISEASE
     Route: 042
  2. CORTICOSTEROID [Concomitant]

REACTIONS (2)
  - EPSTEIN-BARR VIRUS INFECTION [None]
  - SYSTEMIC LUPUS ERYTHEMATOSUS [None]
